FAERS Safety Report 9216615 (Version 1)
Quarter: 2013Q2

REPORT INFORMATION
  Report Type: Spontaneous
  Country: MX (occurrence: None)
  Receive Date: 20130404
  Receipt Date: 20130404
  Transmission Date: 20140414
  Serious: No
  Sender: FDA-Public Use
  Company Number: 1303MEX013820

PATIENT
  Age: 89 Year
  Sex: Female

DRUGS (11)
  1. CEDAX [Suspect]
     Indication: PNEUMONIA
     Route: 048
     Dates: start: 20130312, end: 20130315
  2. FOSAMAX (ALENDRONATE SODIUM) [Concomitant]
  3. FOSAMAX PLUS (ALENDRONATE SODIUM (+) CHOLECALCIFEROL) TABLET [Concomitant]
  4. OMEPRAZOLE (OMEPRAZOLE) [Concomitant]
  5. RANITIDINE (RANITIDINE) [Concomitant]
  6. ENTEROGERMINA (BACILLUS CLAUSIL) [Concomitant]
  7. ALMAX (ALMAGATE) [Concomitant]
  8. MESALAMINE (MESALAMINE) [Concomitant]
  9. COZAAR (LOSARTAN POTASSIUM) [Concomitant]
  10. NIFEDIPINE (NIFEDIPINE) [Concomitant]
  11. OXYGEN (OXYGEN) [Concomitant]

REACTIONS (1)
  - Drug dose omission [None]
